FAERS Safety Report 25124624 (Version 1)
Quarter: 2025Q1

REPORT INFORMATION
  Report Type: Spontaneous
  Country: US (occurrence: None)
  Receive Date: 20250325
  Receipt Date: 20250325
  Transmission Date: 20250409
  Serious: No
  Sender: FDA-CTU
  Company Number: None

PATIENT
  Age: 23 Year
  Sex: Female

DRUGS (1)
  1. DROSPIRENONE\ETHINYL ESTRADIOL [Suspect]
     Active Substance: DROSPIRENONE\ETHINYL ESTRADIOL
     Dosage: FREQUENCY : DAILY;?
     Route: 048

REACTIONS (4)
  - Rash [None]
  - Insomnia [None]
  - Anxiety [None]
  - Skin odour abnormal [None]

NARRATIVE: CASE EVENT DATE: 20250324
